FAERS Safety Report 11051007 (Version 2)
Quarter: 2015Q2

REPORT INFORMATION
  Report Type: Spontaneous
  Country: JP (occurrence: JP)
  Receive Date: 20150421
  Receipt Date: 20150423
  Transmission Date: 20150821
  Serious: Yes (Other)
  Sender: FDA-Public Use
  Company Number: JP-OTSUKA-JP-2015-12156

PATIENT

DRUGS (1)
  1. SAMSCA [Suspect]
     Active Substance: TOLVAPTAN
     Indication: ASCITES
     Dosage: UNK
     Route: 048

REACTIONS (5)
  - Hepatic encephalopathy [Recovering/Resolving]
  - Blood pressure decreased [Unknown]
  - Drug ineffective [Unknown]
  - Thirst [Unknown]
  - Dizziness [Unknown]
